FAERS Safety Report 23858946 (Version 1)
Quarter: 2024Q2

REPORT INFORMATION
  Report Type: Spontaneous
  Country: US (occurrence: US)
  Receive Date: 20240515
  Receipt Date: 20240515
  Transmission Date: 20240715
  Serious: Yes (Other)
  Sender: FDA-Public Use
  Company Number: US-PFIZER INC-PV202400061611

PATIENT
  Age: 2 Year
  Sex: Female

DRUGS (4)
  1. METHYLPREDNISOLONE [Suspect]
     Active Substance: METHYLPREDNISOLONE
     Dosage: UNK (HIGH DOSE)
  2. ANAKINRA [Suspect]
     Active Substance: ANAKINRA
     Dosage: UNK
  3. JAKAFI [Suspect]
     Active Substance: RUXOLITINIB
     Dosage: UNK
  4. GAMIFANT [Suspect]
     Active Substance: EMAPALUMAB-LZSG
     Dosage: UNK

REACTIONS (2)
  - General physical health deterioration [Unknown]
  - Therapy non-responder [Unknown]
